FAERS Safety Report 11067726 (Version 1)
Quarter: 2015Q2

REPORT INFORMATION
  Report Type: Spontaneous
  Country: US (occurrence: None)
  Receive Date: 20150424
  Receipt Date: 20150424
  Transmission Date: 20150821
  Serious: Yes (Hospitalization)
  Sender: FDA-Public Use
  Company Number: None

PATIENT
  Age: 1 Year
  Sex: Male
  Weight: 10.5 kg

DRUGS (2)
  1. BUSULFAN [Suspect]
     Active Substance: BUSULFAN
     Dates: start: 20140329
  2. MELPHALAN [Suspect]
     Active Substance: MELPHALAN
     Dates: start: 20140331

REACTIONS (5)
  - Pleural effusion [None]
  - Tachypnoea [None]
  - Pneumonia [None]
  - Atelectasis [None]
  - Bacteraemia [None]

NARRATIVE: CASE EVENT DATE: 20140523
